FAERS Safety Report 8541320-9 (Version None)
Quarter: 2012Q3

REPORT INFORMATION
  Report Type: 
  Country: None (occurrence: None)
  Receive Date: 20120726
  Receipt Date: 20120723
  Transmission Date: 20120928
  Serious: Yes (Hospitalization)
  Sender: FDA-Public Use
  Company Number: JP-009507513-1207JPN008132

PATIENT

DRUGS (11)
  1. REBETOL [Suspect]
     Indication: HEPATITIS C
     Route: 048
     Dates: start: 20120407, end: 20120629
  2. TELAVIC [Suspect]
     Route: 048
     Dates: start: 20120429, end: 20120623
  3. ALLOPURINOL [Concomitant]
     Route: 048
  4. TELAVIC [Suspect]
     Indication: HEPATITIS C
     Route: 048
     Dates: start: 20120407, end: 20120428
  5. REBETOL [Suspect]
     Route: 048
     Dates: start: 20120630
  6. ALLOPURINOL [Concomitant]
     Indication: HYPERURICAEMIA
     Route: 048
  7. ADVAIR DISKUS 100/50 [Concomitant]
     Indication: EMPHYSEMA
     Dosage: 250 UNK, ONCE
     Route: 055
  8. PEG-INTRON [Suspect]
     Indication: HEPATITIS C
     Dosage: 1.5MCG/KG/WEEK
     Route: 058
     Dates: start: 20120407, end: 20120622
  9. PEG-INTRON [Suspect]
     Dosage: 1.2MCG/KG/WEEK
     Route: 058
     Dates: start: 20120623
  10. ALDACTONE [Suspect]
     Indication: ADVERSE EVENT
     Route: 048
     Dates: start: 20120602, end: 20120623
  11. ZOLPIDEM [Concomitant]
     Route: 048

REACTIONS (4)
  - ANAEMIA [None]
  - DECREASED APPETITE [None]
  - MUSCULAR WEAKNESS [None]
  - RENAL DISORDER [None]
